FAERS Safety Report 14284999 (Version 1)
Quarter: 2017Q4

REPORT INFORMATION
  Report Type: Report from Study
  Country: PL (occurrence: PL)
  Receive Date: 20171214
  Receipt Date: 20171214
  Transmission Date: 20180321
  Serious: Yes (Other)
  Sender: FDA-Public Use
  Company Number: PL-ROCHE-2034935

PATIENT
  Age: 5 Year
  Sex: Female
  Weight: 14.2 kg

DRUGS (4)
  1. ROACTEMRA [Suspect]
     Active Substance: TOCILIZUMAB
     Indication: JUVENILE IDIOPATHIC ARTHRITIS
     Dosage: 20% OF 140MG ON 14/NOV/2017
     Route: 042
     Dates: start: 20170817, end: 20171114
  2. ENCORTON [Concomitant]
     Active Substance: PREDNISONE
     Indication: JUVENILE IDIOPATHIC ARTHRITIS
     Route: 048
     Dates: start: 201705
  3. FOLIC ACID. [Concomitant]
     Active Substance: FOLIC ACID
     Indication: JUVENILE IDIOPATHIC ARTHRITIS
     Route: 048
     Dates: start: 201705
  4. MTX SUPPORT [Concomitant]
     Active Substance: CYANOCOBALAMIN\FOLIC ACID
     Indication: JUVENILE IDIOPATHIC ARTHRITIS
     Route: 058
     Dates: start: 201705

REACTIONS (3)
  - Anxiety [Recovered/Resolved]
  - Tremor [Recovered/Resolved]
  - Erythema [Recovered/Resolved]

NARRATIVE: CASE EVENT DATE: 20171114
